FAERS Safety Report 11436710 (Version 1)
Quarter: 2015Q3

REPORT INFORMATION
  Report Type: Spontaneous
  Country: US (occurrence: US)
  Receive Date: 20150821
  Receipt Date: 20150821
  Transmission Date: 20151125
  Serious: No
  Sender: FDA-Public Use
  Company Number: US-ELI_LILLY_AND_COMPANY-US201407001521

PATIENT
  Sex: Female

DRUGS (2)
  1. HUMULIN 70/30 [Suspect]
     Active Substance: INSULIN HUMAN
     Dosage: 24 U, EACH EVENING
     Route: 065
     Dates: start: 2012
  2. HUMULIN 70/30 [Suspect]
     Active Substance: INSULIN HUMAN
     Indication: DIABETES MELLITUS
     Dosage: 45 U, EACH MORNING
     Route: 065
     Dates: start: 2012

REACTIONS (4)
  - Visual impairment [Unknown]
  - Underdose [Unknown]
  - Sensory loss [Unknown]
  - Paralysis [Unknown]
